FAERS Safety Report 18435466 (Version 2)
Quarter: 2021Q1

REPORT INFORMATION
  Report Type: Spontaneous
  Country: PK (occurrence: PK)
  Receive Date: 20201027
  Receipt Date: 20210331
  Transmission Date: 20210419
  Serious: Yes (Other)
  Sender: FDA-Public Use
  Company Number: PK-AMGEN-PAKSP2019182399

PATIENT
  Age: 24 Year
  Sex: Female
  Weight: 67 kg

DRUGS (11)
  1. ENBREL [Suspect]
     Active Substance: ETANERCEPT
     Indication: RHEUMATOID ARTHRITIS
     Dosage: 50 MILLIGRAM, QWK
     Route: 058
     Dates: start: 201811
  2. CAC [Concomitant]
     Dosage: 1 DOSAGE FORM, QD
  3. AVELOX [Concomitant]
     Active Substance: MOXIFLOXACIN HYDROCHLORIDE
     Dosage: 50 MILLIGRAM, QD
  4. CAC [Concomitant]
     Dosage: UNK UNK, QD (CAC 1000 PLCS DAILY)
  5. LOSEC [Concomitant]
     Active Substance: OMEPRAZOLE
     Dosage: 20 MG, 1X/DAY (20 MG BEFORE BREAKFAST)
  6. MTX [METHOTREXATE SODIUM] [Concomitant]
     Active Substance: METHOTREXATE SODIUM
     Dosage: UNK
     Dates: start: 201804, end: 201812
  7. ZOLOFT [Concomitant]
     Active Substance: SERTRALINE HYDROCHLORIDE
     Dosage: 100 MILLIGRAM, QD
     Route: 065
  8. FOLIC ACID. [Concomitant]
     Active Substance: FOLIC ACID
     Dosage: 5 MILLIGRAM, QD
  9. HCQ [Concomitant]
     Active Substance: HYDROXYCHLOROQUINE SULFATE
     Dosage: 200 MILLIGRAM, BID
  10. HCQ [Concomitant]
     Active Substance: HYDROXYCHLOROQUINE SULFATE
     Dosage: 200 MG, UNK (200 MG 1+1)
  11. DELTACORTRIL [Concomitant]
     Active Substance: PREDNISOLONE
     Dosage: 5 MG, ONCE EVERY THIRD DAY

REACTIONS (7)
  - Neck pain [Unknown]
  - Arthralgia [Unknown]
  - Epicondylitis [Unknown]
  - Skin discolouration [Recovering/Resolving]
  - Mood swings [Unknown]
  - COVID-19 [Unknown]
  - Dizziness [Unknown]
